FAERS Safety Report 4292441-0 (Version None)
Quarter: 2004Q1

REPORT INFORMATION
  Report Type: 
  Country: None (occurrence: None)
  Receive Date: 20040126
  Receipt Date: 20030905
  Transmission Date: 20041129
  Serious: No
  Sender: FDA-Public Use
  Company Number: USA030742874

PATIENT
  Age: 63 Year
  Sex: Female
  Weight: 66 kg

DRUGS (17)
  1. FORTEO [Suspect]
     Indication: OSTEOPOROSIS
     Dosage: 20 UG/DAY
     Dates: start: 20030627, end: 20030801
  2. PREMARIN (ESTROGENS CONJEGATED) [Concomitant]
  3. FOLIC ACID [Concomitant]
  4. DILTIAZEM [Concomitant]
  5. CLONAZEPAM [Concomitant]
  6. PROTONIX [Concomitant]
  7. PREVACID [Concomitant]
  8. METHOTREXATE [Concomitant]
  9. RHINOCORT [Concomitant]
  10. SEREVENT DISKUS (SALMETEROL XINAFOATE) [Concomitant]
  11. ATROVENT [Concomitant]
  12. DUONEB [Concomitant]
  13. TYLENOL [Concomitant]
  14. ULTRAM [Concomitant]
  15. CARTIA (ACETYLSALICYCLIC ACID) [Concomitant]
  16. XANAX [Concomitant]
  17. MULTIVITAMIN [Concomitant]

REACTIONS (5)
  - BRONCHITIS [None]
  - INJECTION SITE HAEMORRHAGE [None]
  - INJECTION SITE RASH [None]
  - MUSCLE CRAMP [None]
  - PAIN IN EXTREMITY [None]
